FAERS Safety Report 8884623 (Version 6)
Quarter: 2015Q4

REPORT INFORMATION
  Report Type: Report from Study
  Country: CA (occurrence: CA)
  Receive Date: 20121102
  Receipt Date: 20151207
  Transmission Date: 20160305
  Serious: Yes (Other)
  Sender: FDA-Public Use
  Company Number: PHHY2012CA085150

PATIENT
  Age: 32 Year
  Sex: Female

DRUGS (1)
  1. GILENYA [Suspect]
     Active Substance: FINGOLIMOD HYDROCHLORIDE
     Indication: RELAPSING-REMITTING MULTIPLE SCLEROSIS
     Dosage: 0.5 MG, QD
     Route: 048
     Dates: start: 20120925, end: 20140620

REACTIONS (10)
  - Dizziness postural [Recovered/Resolved]
  - Bipolar disorder [Recovering/Resolving]
  - Drug dose omission [Unknown]
  - Mental disorder [Unknown]
  - Central nervous system lesion [Unknown]
  - Blood pressure increased [Recovered/Resolved]
  - Elevated mood [Unknown]
  - Headache [Recovered/Resolved]
  - Product taste abnormal [Unknown]
  - Headache [Recovering/Resolving]

NARRATIVE: CASE EVENT DATE: 20120925
